FAERS Safety Report 8385922 (Version 3)
Quarter: 2012Q4

REPORT INFORMATION
  Report Type: 
  Country: US (occurrence: US)
  Receive Date: 20120202
  Receipt Date: 20121012
  Transmission Date: 20130627
  Serious: Yes (Death)
  Sender: FDA-Public Use
  Company Number: PHEH2012US002732

PATIENT
  Age: 52 Year
  Sex: Male
  Weight: 102 kg

DRUGS (4)
  1. ZOMETA [Suspect]
     Dosage: 4 mg, QMO
     Route: 042
     Dates: start: 20110919
  2. ZOMETA [Suspect]
     Dosage: 4 mg, QMO
     Route: 042
     Dates: start: 20111022
  3. ZOMETA [Suspect]
     Dosage: 4 mg, QMO
     Route: 042
     Dates: start: 20111130, end: 20111130
  4. VELCADE [Concomitant]
     Indication: MULTIPLE MYELOMA
     Dosage: 2.1 mg, UNK
     Route: 042
     Dates: start: 20111007, end: 20111030

REACTIONS (1)
  - Plasma cell myeloma [Fatal]
